FAERS Safety Report 5611252-4 (Version None)
Quarter: 2008Q1

REPORT INFORMATION
  Report Type: 
  Country: None (occurrence: None)
  Receive Date: 20080201
  Receipt Date: 20080110
  Transmission Date: 20080703
  Serious: Yes (Death, Hospitalization, Other)
  Sender: FDA-Public Use
  Company Number: PHHO2006JP10027

PATIENT
  Age: 74 Year
  Sex: Male

DRUGS (10)
  1. GLEEVEC [Suspect]
     Indication: CHRONIC MYELOID LEUKAEMIA
     Dosage: 400MG DAILY
     Route: 048
     Dates: start: 20021011, end: 20021028
  2. GLEEVEC [Suspect]
     Dosage: 300 MG, QD
     Route: 048
     Dates: start: 20021029
  3. GLEEVEC [Suspect]
     Dosage: 300 MG, QD
     Dates: start: 20060411
  4. GLEEVEC [Suspect]
     Dosage: 200 MG, QD
     Dates: start: 20060412
  5. MINERALIN [Concomitant]
     Indication: MALNUTRITION
  6. NEOPHYLLIN [Concomitant]
     Indication: RESPIRATORY FAILURE
     Route: 048
     Dates: start: 20060413, end: 20060414
  7. CIPROFLOXACIN [Concomitant]
     Indication: PYELONEPHRITIS
     Route: 048
     Dates: start: 20060412, end: 20060414
  8. LASIX [Concomitant]
     Indication: PLEURAL EFFUSION
     Route: 048
     Dates: start: 20060412, end: 20060413
  9. ALBUMIN (HUMAN) [Concomitant]
     Indication: MALNUTRITION
     Route: 042
     Dates: start: 20060412, end: 20060414
  10. FESIN [Concomitant]
     Indication: ANAEMIA

REACTIONS (27)
  - ALANINE AMINOTRANSFERASE INCREASED [None]
  - ANAEMIA [None]
  - ASPARTATE AMINOTRANSFERASE INCREASED [None]
  - ASPIRATION [None]
  - BLADDER DISORDER [None]
  - BLADDER IRRIGATION [None]
  - BLOOD CREATININE INCREASED [None]
  - BLOOD LACTATE DEHYDROGENASE INCREASED [None]
  - DYSURIA [None]
  - FEELING ABNORMAL [None]
  - FISTULA [None]
  - GAMMA-GLUTAMYLTRANSFERASE INCREASED [None]
  - GENERAL PHYSICAL HEALTH DETERIORATION [None]
  - HAEMATOCRIT DECREASED [None]
  - HAEMOGLOBIN DECREASED [None]
  - ILEUS [None]
  - MALIGNANT NEOPLASM PROGRESSION [None]
  - MALNUTRITION [None]
  - OEDEMA [None]
  - PLEURAL EFFUSION [None]
  - POLYURIA [None]
  - PYELONEPHRITIS [None]
  - RASH [None]
  - RED BLOOD CELL COUNT DECREASED [None]
  - RESPIRATORY FAILURE [None]
  - URINARY TRACT INFECTION [None]
  - URINARY TRACT OBSTRUCTION [None]
